FAERS Safety Report 10365183 (Version 1)
Quarter: 2014Q3

REPORT INFORMATION
  Report Type: Spontaneous
  Country: US (occurrence: None)
  Receive Date: 20140804
  Receipt Date: 20140804
  Transmission Date: 20150326
  Serious: Yes (Disabling)
  Sender: FDA-Public Use
  Company Number: None

PATIENT
  Age: 76 Year
  Sex: Female
  Weight: 78.02 kg

DRUGS (1)
  1. LEVOFLOXACIN [Suspect]
     Active Substance: LEVOFLOXACIN
     Indication: COUGH
     Dosage: 1
     Route: 048
     Dates: start: 20140410, end: 20140411

REACTIONS (6)
  - Pain [None]
  - Neuralgia [None]
  - Gait disturbance [None]
  - Chest pain [None]
  - Peripheral swelling [None]
  - Activities of daily living impaired [None]

NARRATIVE: CASE EVENT DATE: 20140409
